FAERS Safety Report 8121309-4 (Version None)
Quarter: 2012Q1

REPORT INFORMATION
  Report Type: 
  Country: None (occurrence: None)
  Receive Date: 20120208
  Receipt Date: 20120127
  Transmission Date: 20120608
  Serious: Yes (Hospitalization, Other)
  Sender: FDA-Public Use
  Company Number: US-BAYER-2011-033934

PATIENT
  Age: 24 Year
  Sex: Female
  Weight: 58.957 kg

DRUGS (7)
  1. HEART MEDICATION (NOS) [Concomitant]
     Dosage: UNK
     Dates: start: 20071001
  2. ZOLOFT [Concomitant]
  3. PROZAC [Concomitant]
  4. RITALIN [Concomitant]
  5. YAZ [Suspect]
     Indication: PREMENSTRUAL SYNDROME
     Dosage: UNK
     Dates: start: 20070101, end: 20080201
  6. ASPIRIN [Concomitant]
  7. YASMIN [Suspect]
     Indication: PREMENSTRUAL SYNDROME
     Dosage: UNK
     Dates: start: 20070101, end: 20080201

REACTIONS (5)
  - DEEP VEIN THROMBOSIS [None]
  - PULMONARY EMBOLISM [None]
  - INJURY [None]
  - CHOLECYSTECTOMY [None]
  - PAIN [None]
